FAERS Safety Report 7617931-1 (Version None)
Quarter: 2011Q3

REPORT INFORMATION
  Report Type: 
  Country: None (occurrence: None)
  Receive Date: 20110718
  Receipt Date: 20110701
  Transmission Date: 20111222
  Serious: Yes (Other)
  Sender: FDA-Public Use
  Company Number: PHHY2011ES62435

PATIENT
  Age: 41 Year
  Sex: Male

DRUGS (1)
  1. CYCLOSPORINE [Suspect]
     Indication: LIVER TRANSPLANT
     Dosage: 140 MG PER DAY

REACTIONS (4)
  - PAPULE [None]
  - SKIN LESION [None]
  - SEBACEOUS HYPERPLASIA [None]
  - RASH [None]
